FAERS Safety Report 7404162-3 (Version None)
Quarter: 2011Q2

REPORT INFORMATION
  Report Type: 
  Country: None (occurrence: None)
  Receive Date: 20110408
  Receipt Date: 20110406
  Transmission Date: 20111010
  Serious: Yes (Hospitalization, Other)
  Sender: FDA-Public Use
  Company Number: NP-ROXANE LABORATORIES, INC.-2011-RO-00459RO

PATIENT
  Age: 27 Year
  Sex: Male

DRUGS (3)
  1. DEXAMETHASONE [Suspect]
     Indication: PROPHYLAXIS
     Dosage: 12 MG
  2. ACETAZOLAMIDE [Suspect]
     Indication: PROPHYLAXIS
     Dosage: 500 MG
  3. NIFEDIPINE [Suspect]
     Indication: PROPHYLAXIS
     Dosage: 30 MG

REACTIONS (5)
  - PANIC ATTACK [None]
  - POST-TRAUMATIC STRESS DISORDER [None]
  - OSTEONECROSIS [None]
  - TOXICITY TO VARIOUS AGENTS [None]
  - DEPRESSION [None]
